FAERS Safety Report 5508898-0 (Version None)
Quarter: 2007Q4

REPORT INFORMATION
  Report Type: 
  Country: None (occurrence: None)
  Receive Date: 20071107
  Receipt Date: 20071031
  Transmission Date: 20080405
  Serious: Yes (Life-Threatening, Hospitalization)
  Sender: FDA-Public Use
  Company Number: GR-ABBOTT-07P-066-0422834-00

PATIENT
  Age: 55 Year
  Sex: Female

DRUGS (5)
  1. HUMIRA [Suspect]
     Indication: JUVENILE ARTHRITIS
     Route: 058
     Dates: start: 20070915, end: 20071029
  2. LEFLUNOMIDE [Suspect]
     Indication: JUVENILE ARTHRITIS
     Route: 048
     Dates: start: 20070915, end: 20071029
  3. METHYLPREDNISOLONE [Concomitant]
     Indication: JUVENILE ARTHRITIS
     Route: 048
     Dates: start: 20010101, end: 20071029
  4. PREDNISOLONE [Concomitant]
     Indication: JUVENILE ARTHRITIS
     Route: 042
     Dates: start: 20071030
  5. IBANDRONATE SODIUM [Concomitant]
     Indication: OSTEOPOROSIS
     Route: 048
     Dates: end: 20071029

REACTIONS (6)
  - ABDOMINAL PAIN [None]
  - DYSPHAGIA [None]
  - FUNGAL INFECTION [None]
  - HERPES VIRUS INFECTION [None]
  - SEPSIS [None]
  - VOMITING [None]
